FAERS Safety Report 15628923 (Version 3)
Quarter: 2019Q2

REPORT INFORMATION
  Report Type: Spontaneous
  Country: US (occurrence: US)
  Receive Date: 20181116
  Receipt Date: 20190614
  Transmission Date: 20190711
  Serious: No
  Sender: FDA-Public Use
  Company Number: US-PFIZER INC-2018468256

PATIENT
  Age: 62 Year
  Sex: Male

DRUGS (2)
  1. IMPOYZ [Concomitant]
     Active Substance: CLOBETASOL PROPIONATE
     Dosage: UNK
     Dates: start: 201811
  2. EUCRISA [Suspect]
     Active Substance: CRISABOROLE
     Indication: ECZEMA
     Dosage: 60 MG, 2X/DAY
     Dates: start: 20180613

REACTIONS (1)
  - Drug ineffective [Recovered/Resolved]
